FAERS Safety Report 5829196-1 (Version None)
Quarter: 2008Q2

REPORT INFORMATION
  Report Type: 
  Country: None (occurrence: None)
  Receive Date: 20080601
  Receipt Date: 20080324
  Transmission Date: 20081010
  Serious: No
  Sender: FDA-Public Use
  Company Number: US200802005309

PATIENT
  Age: 55 Year
  Sex: Female

DRUGS (11)
  1. BYETTA [Suspect]
     Dates: start: 20061201
  2. BYETTA [Suspect]
     Dates: start: 20071227
  3. ASPIRIN [Concomitant]
  4. METFORMIN HCL [Concomitant]
  5. LEVOTHYROXINE SODIUM [Concomitant]
  6. RHINOCORT [Concomitant]
  7. LISINOPRIL [Concomitant]
  8. LIPITOR [Concomitant]
  9. METOPROLOL TARTRATE [Concomitant]
  10. ALPRAZOLAM [Concomitant]
  11. ZYRTEC [Concomitant]

REACTIONS (2)
  - LIP SWELLING [None]
  - PHARYNGEAL OEDEMA [None]
